FAERS Safety Report 20321221 (Version 1)
Quarter: 2022Q1

REPORT INFORMATION
  Report Type: Spontaneous
  Country: US (occurrence: None)
  Receive Date: 20220111
  Receipt Date: 20220111
  Transmission Date: 20220423
  Serious: Yes (Death)
  Sender: FDA-Public Use
  Company Number: US-ROCHE-2994985

PATIENT
  Age: 81 Year
  Sex: Female
  Weight: 106.3 kg

DRUGS (2)
  1. ACTEMRA [Suspect]
     Active Substance: TOCILIZUMAB
     Indication: COVID-19
     Route: 042
     Dates: start: 20211221
  2. DEXAMETHASONE [Concomitant]
     Active Substance: DEXAMETHASONE
     Dates: start: 20211221, end: 20211228

REACTIONS (3)
  - Acute respiratory failure [Fatal]
  - Diastolic dysfunction [Fatal]
  - Off label use [Unknown]

NARRATIVE: CASE EVENT DATE: 20211228
